FAERS Safety Report 13325895 (Version 1)
Quarter: 2017Q1

REPORT INFORMATION
  Report Type: Spontaneous
  Country: US (occurrence: US)
  Receive Date: 20170310
  Receipt Date: 20170310
  Transmission Date: 20170428
  Serious: No
  Sender: FDA-Public Use
  Company Number: US-PARAPRO-2016PP000043

PATIENT
  Age: 7 Year
  Sex: Female

DRUGS (2)
  1. NATROBA [Suspect]
     Active Substance: SPINOSAD
     Indication: LICE INFESTATION
     Dosage: UNK
     Route: 061
     Dates: start: 20160916
  2. TEA TREE OIL. [Suspect]
     Active Substance: TEA TREE OIL

REACTIONS (1)
  - Alopecia [Not Recovered/Not Resolved]

NARRATIVE: CASE EVENT DATE: 201609
